FAERS Safety Report 5005942-4 (Version None)
Quarter: 2006Q2

REPORT INFORMATION
  Report Type: 
  Country: None (occurrence: None)
  Receive Date: 20060517
  Receipt Date: 20060517
  Transmission Date: 20061013
  Serious: Yes (Other)
  Sender: FDA-Public Use
  Company Number: None

PATIENT
  Age: 43 Year
  Sex: Female
  Weight: 58.9676 kg

DRUGS (1)
  1. REQUIP [Suspect]
     Indication: RESTLESS LEGS SYNDROME
     Dosage: 0.25MG 4 TABLETS PER DAY PO
     Route: 048
     Dates: start: 20051210, end: 20051216

REACTIONS (5)
  - BODY TEMPERATURE DECREASED [None]
  - DEPRESSION [None]
  - ESSENTIAL TREMOR [None]
  - FATIGUE [None]
  - FEELING COLD [None]
